FAERS Safety Report 9758997 (Version 1)
Quarter: 2013Q4

REPORT INFORMATION
  Report Type: Spontaneous
  Country: US (occurrence: None)
  Receive Date: 20131216
  Receipt Date: 20131216
  Transmission Date: 20140711
  Serious: Yes (Other)
  Sender: FDA-Public Use
  Company Number: 163-21880-12081204(0)

PATIENT
  Age: 63 Year
  Sex: Female

DRUGS (3)
  1. REVLIMID(LENALIDOMIDE)(10 MILLIGRAM, CAPSULES) [Suspect]
     Indication: PLASMA CELL MYELOMA
     Dosage: 10 MG, 21 IN 28  D, PO?10 MG, 21 IN 28 D, PO? ? ? ? ? ?
  2. LYRICA [Suspect]
     Indication: NEUROPATHY PERIPHERAL
     Dosage: UNK? ? ? ? ? ? ?
  3. BENZODIAZEPINE [Suspect]
     Indication: PRODUCT USED FOR UNKNOWN INDICATION
     Dosage: UNK? ? ? ? ? ? ?

REACTIONS (8)
  - Balance disorder [None]
  - Neuropathy peripheral [None]
  - Dizziness [None]
  - Local swelling [None]
  - Fatigue [None]
  - Bone pain [None]
  - Fall [None]
  - Pain [None]
